FAERS Safety Report 4393911-7 (Version None)
Quarter: 2004Q3

REPORT INFORMATION
  Report Type: 
  Country: None (occurrence: None)
  Receive Date: 20040702
  Receipt Date: 20040624
  Transmission Date: 20050211
  Serious: Yes (Hospitalization)
  Sender: FDA-Public Use
  Company Number: 163-20785-04020317

PATIENT
  Age: 71 Year
  Sex: Male

DRUGS (5)
  1. THALOMID [Suspect]
     Indication: MULTIPLE MYELOMA
     Dosage: 100 MG, DAILY, ORAL
     Route: 048
     Dates: start: 20040201, end: 20040316
  2. APOGEN (EPOETIN ALFA) [Concomitant]
  3. VITAMINS (VITAMINS0 [Concomitant]
  4. PREVACID [Concomitant]
  5. NEPHROCAPS (NEPHROCAPS) [Concomitant]

REACTIONS (18)
  - ASTHENIA [None]
  - CARDIAC FAILURE CONGESTIVE [None]
  - DRUG INTOLERANCE [None]
  - DYSPHAGIA [None]
  - HAEMORRHAGE [None]
  - HAEMOTHORAX [None]
  - IATROGENIC INJURY [None]
  - MALIGNANT NEOPLASM PROGRESSION [None]
  - MULTIPLE MYELOMA [None]
  - NEPHROLITHIASIS [None]
  - PNEUMONIA [None]
  - POST PROCEDURAL COMPLICATION [None]
  - PROCEDURAL HYPOTENSION [None]
  - RENAL FAILURE ACUTE [None]
  - RESPIRATORY FAILURE [None]
  - SEPSIS [None]
  - SHOCK [None]
  - VASCULAR RUPTURE [None]
